FAERS Safety Report 11984352 (Version 1)
Quarter: 2016Q1

REPORT INFORMATION
  Report Type: Spontaneous
  Country: BR (occurrence: BR)
  Receive Date: 20160201
  Receipt Date: 20160201
  Transmission Date: 20160526
  Serious: Yes (Other)
  Sender: FDA-Public Use
  Company Number: BR-PFIZER INC-2016045132

PATIENT
  Age: 48 Year
  Sex: Female

DRUGS (3)
  1. XALATAN [Suspect]
     Active Substance: LATANOPROST
     Indication: GLAUCOMA
     Dosage: ONE DROP EACH EYE, 1X/DAY
     Route: 047
  2. AAS [Concomitant]
     Active Substance: ASPIRIN
     Dosage: UNK
  3. ARTRODAR [Concomitant]
     Active Substance: DIACEREIN
     Indication: ARTHROPATHY
     Dosage: UNK

REACTIONS (2)
  - Thrombosis [Recovered/Resolved]
  - Pain [Recovered/Resolved]

NARRATIVE: CASE EVENT DATE: 2013
